FAERS Safety Report 18112917 (Version 1)
Quarter: 2020Q3

REPORT INFORMATION
  Report Type: Spontaneous
  Country: CA (occurrence: CA)
  Receive Date: 20200805
  Receipt Date: 20200805
  Transmission Date: 20201103
  Serious: Yes (Life-Threatening, Hospitalization, Other)
  Sender: FDA-Public Use
  Company Number: CA-ACCORD-193840

PATIENT
  Age: 6 Year
  Sex: Female
  Weight: 19 kg

DRUGS (41)
  1. CETIRIZINE [Concomitant]
     Active Substance: CETIRIZINE HYDROCHLORIDE
     Dosage: NOT SPECIFIED
  2. HYDROCORTISONE. [Concomitant]
     Active Substance: HYDROCORTISONE
     Dosage: POWDER FOR SOLUTION INTRAMUSCULAR
  3. METHYLPREDNISOLONE. [Concomitant]
     Active Substance: METHYLPREDNISOLONE
     Dosage: NOT SPECIFIED
  4. AMPHOTERICIN B/AMPHOTERICIN B/LIPOSOME [Concomitant]
     Active Substance: AMPHOTERICIN B
     Dosage: NOT SPECIFIED
  5. LORAZEPAM. [Concomitant]
     Active Substance: LORAZEPAM
     Dosage: NOT SPECIFIED
  6. METOCLOPRAMIDE. [Concomitant]
     Active Substance: METOCLOPRAMIDE
     Dosage: NOT SPECIFIED
  7. ANTITHYMOCYTE IMMUNOGLOBULIN [Concomitant]
     Active Substance: THYMOCYTE IMMUNE GLOBULIN NOS
     Dosage: POWDER FOR SOLUTION INTRAVENOUS
  8. CEFTAZIDIME/CEFTAZIDIME PENTAHYDRATE [Concomitant]
     Active Substance: CEFTAZIDIME
     Dosage: POWDER FOR SOLUTION
  9. EPINEPHRINE. [Concomitant]
     Active Substance: EPINEPHRINE
     Dosage: SOLUTION INTRAMUSCULAR
  10. GANCICLOVIR. [Concomitant]
     Active Substance: GANCICLOVIR
     Dosage: POWDER FOR SOLUTION INTRAVENOUS
  11. TOBRAMYCIN. [Concomitant]
     Active Substance: TOBRAMYCIN
     Dosage: NOT SPECIFIED
  12. TRIMETHOPRIM. [Concomitant]
     Active Substance: TRIMETHOPRIM
  13. AMLODIPINE [Concomitant]
     Active Substance: AMLODIPINE BESYLATE
     Dosage: NOT SPECIFIED
  14. DIPHENHYDRAMINE. [Concomitant]
     Active Substance: DIPHENHYDRAMINE
     Dosage: NOT SPECIFIED
  15. MAGNESIUM HYDROXIDE. [Concomitant]
     Active Substance: MAGNESIUM HYDROXIDE
     Dosage: NOT SPECIFIED
  16. NIFEDIPINE. [Concomitant]
     Active Substance: NIFEDIPINE
  17. RANITIDINE. [Concomitant]
     Active Substance: RANITIDINE
  18. VORICONAZOLE. [Concomitant]
     Active Substance: VORICONAZOLE
     Dosage: NOT SPECIFIED
  19. MYCOPHENOLIC ACID. [Suspect]
     Active Substance: MYCOPHENOLIC ACID
     Indication: PROPHYLAXIS AGAINST GRAFT VERSUS HOST DISEASE
     Dosage: 2 EVERY 1 DAYS
     Route: 042
  20. FLUDARABINE/FLUDARABINE PHOSPHATE [Suspect]
     Active Substance: FLUDARABINE PHOSPHATE
     Indication: STEM CELL TRANSPLANT
     Dosage: NOT SPECIFIED
     Route: 042
  21. PARACETAMOL [Concomitant]
     Active Substance: ACETAMINOPHEN
     Dosage: NOT SPECIFIED
  22. CALCIUM/COLECALCIFEROL [Concomitant]
     Active Substance: CALCIUM\CHOLECALCIFEROL
     Dosage: NOT SPECIFIED
  23. HEPARIN [Concomitant]
     Active Substance: HEPARIN SODIUM
     Dosage: NOT SPECIFIED
  24. LEVETIRACETAM. [Concomitant]
     Active Substance: LEVETIRACETAM
  25. METRONIDAZOLE. [Concomitant]
     Active Substance: METRONIDAZOLE
  26. MYCOPHENOLIC ACID. [Suspect]
     Active Substance: MYCOPHENOLIC ACID
     Indication: PROPHYLAXIS AGAINST GRAFT VERSUS HOST DISEASE
     Dosage: 2 EVERY 1 DAYS
     Route: 048
  27. ACICLOVIR [Concomitant]
     Active Substance: ACYCLOVIR
     Dosage: NOT SPECIFIED
  28. CHLORHEXIDINE [Concomitant]
     Active Substance: CHLORHEXIDINE
     Dosage: NOT SPECIFIED
  29. PIPERACILLIN/TAZOBACTAM [Concomitant]
     Active Substance: PIPERACILLIN SODIUM\TAZOBACTAM SODIUM
     Dosage: POWDER FOR SOLUTION INTRAVENOUS
  30. MYCOPHENOLIC ACID. [Suspect]
     Active Substance: MYCOPHENOLIC ACID
     Indication: PROPHYLAXIS AGAINST GRAFT VERSUS HOST DISEASE
     Dosage: 2 EVERY 1 DAYS
     Route: 042
  31. CICLOSPORIN [Concomitant]
     Active Substance: CYCLOSPORINE
     Dosage: NOT SPECIFIED
  32. DIMENHYDRINATE. [Concomitant]
     Active Substance: DIMENHYDRINATE
     Dosage: LIQUID INTRAVENOUS
  33. BUSULFAN. [Suspect]
     Active Substance: BUSULFAN
     Indication: STEM CELL TRANSPLANT
     Dosage: NOT SPECIFIED
     Route: 042
  34. BUSULFAN. [Suspect]
     Active Substance: BUSULFAN
     Indication: STEM CELL TRANSPLANT
     Dosage: NOT SPECIFIED
     Route: 042
  35. BUSULFAN. [Suspect]
     Active Substance: BUSULFAN
     Indication: STEM CELL TRANSPLANT
     Dosage: NOT SPECIFIED
     Route: 042
  36. DEXAMETHASONE. [Concomitant]
     Active Substance: DEXAMETHASONE
     Dosage: LIQUID INTRA? ARTICULAR
  37. FUROSEMIDE. [Concomitant]
     Active Substance: FUROSEMIDE
  38. ONDANSETRON [Concomitant]
     Active Substance: ONDANSETRON
  39. MACROGOL [Concomitant]
     Active Substance: POLYETHYLENE GLYCOLS
     Dosage: NOT SPECIFIED
  40. PREDNISONE. [Concomitant]
     Active Substance: PREDNISONE
     Dosage: NOT SPECIFIED
  41. SODIUM [Concomitant]
     Active Substance: SODIUM
     Dosage: NOT SPECIFIED

REACTIONS (3)
  - Aplastic anaemia [Recovered/Resolved]
  - Myelosuppression [Recovered/Resolved]
  - Off label use [Unknown]
